FAERS Safety Report 6764630-4 (Version None)
Quarter: 2010Q2

REPORT INFORMATION
  Report Type: 
  Country: None (occurrence: None)
  Receive Date: 20100609
  Receipt Date: 20100310
  Transmission Date: 20101027
  Serious: No
  Sender: FDA-Public Use
  Company Number: 2010006323

PATIENT
  Age: 10 Year
  Sex: Female
  Weight: 32.2054 kg

DRUGS (1)
  1. CHILDREN'S ZYRTEC ALLERGY [Suspect]
     Indication: URTICARIA
     Dosage: ONE TIME, ORAL
     Route: 048
     Dates: start: 20100308

REACTIONS (1)
  - DRUG INEFFECTIVE [None]
